FAERS Safety Report 6314013-6 (Version None)
Quarter: 2009Q3

REPORT INFORMATION
  Report Type: 
  Country: None (occurrence: None)
  Receive Date: 20090818
  Receipt Date: 20090805
  Transmission Date: 20100115
  Serious: Yes (Other)
  Sender: FDA-Public Use
  Company Number: ZM-B.I. PHARMACEUTICALS,INC./RIDGEFIELD-2009-DE-05307GD

PATIENT

DRUGS (1)
  1. PEDIMUNE [Suspect]
     Indication: HIV INFECTION
     Dosage: FULL DOSE
     Route: 048

REACTIONS (1)
  - HAEMATOLOGY TEST ABNORMAL [None]
